FAERS Safety Report 8524863-3 (Version None)
Quarter: 2012Q3

REPORT INFORMATION
  Report Type: 
  Country: None (occurrence: None)
  Receive Date: 20120720
  Receipt Date: 20120717
  Transmission Date: 20120928
  Serious: Yes (Other)
  Sender: FDA-Public Use
  Company Number: PHHY2012TW061031

PATIENT
  Age: 69 Year
  Sex: Female

DRUGS (8)
  1. AMISULPRIDE [Concomitant]
     Dosage: 400 MG/DAY
  2. TRIHEXYPHENIDYL HCL [Suspect]
     Dosage: 10 MG/DAY
  3. TRIHEXYPHENIDYL HCL [Suspect]
     Dosage: 4 MG/DAY
  4. AMISULPRIDE [Concomitant]
     Dosage: 200 MG/DAY
  5. AMANTADINE HCL [Suspect]
     Indication: PARKINSONISM
     Dosage: 200 MG/DAY
  6. TRIHEXYPHENIDYL HCL [Suspect]
     Indication: PARKINSONISM
     Dosage: 4 MG/DAY
  7. ARIPIPRAZOLE [Suspect]
     Dosage: UNK UKN, UNK
  8. RISPERIDONE [Concomitant]
     Dosage: 3 MG/DAY

REACTIONS (4)
  - DYSKINESIA [None]
  - TARDIVE DYSKINESIA [None]
  - GRIMACING [None]
  - EXCESSIVE EYE BLINKING [None]
